FAERS Safety Report 23326497 (Version 2)
Quarter: 2025Q3

REPORT INFORMATION
  Report Type: Spontaneous
  Country: US (occurrence: US)
  Receive Date: 20231221
  Receipt Date: 20250708
  Transmission Date: 20251021
  Serious: Yes (Other)
  Sender: BIOVITRUM
  Company Number: US-BIOVITRUM-2023-US-020583

PATIENT
  Age: 60 Year
  Sex: Female

DRUGS (1)
  1. DOPTELET [Suspect]
     Active Substance: AVATROMBOPAG MALEATE
     Indication: Immune thrombocytopenia
     Route: 048
     Dates: start: 20220716

REACTIONS (4)
  - Blood sodium decreased [Unknown]
  - Loss of consciousness [Unknown]
  - Fluid intake restriction [Unknown]
  - Behaviour disorder [Unknown]
